FAERS Safety Report 12051978 (Version 1)
Quarter: 2016Q1

REPORT INFORMATION
  Report Type: Spontaneous
  Country: US (occurrence: US)
  Receive Date: 20160209
  Receipt Date: 20160209
  Transmission Date: 20160526
  Serious: No
  Sender: FDA-Public Use
  Company Number: US-INVAGEN PHARMACEUTICALS, INC.-1047507

PATIENT
  Age: 72 Year
  Sex: Female
  Weight: 86.36 kg

DRUGS (4)
  1. LISINOPRIL 10MG [Concomitant]
  2. ANASTROZOLE. [Concomitant]
     Active Substance: ANASTROZOLE
  3. GABAPENTIN. [Suspect]
     Active Substance: GABAPENTIN
     Indication: NEURALGIA
     Route: 048
  4. CYMBALTA [Concomitant]
     Active Substance: DULOXETINE HYDROCHLORIDE

REACTIONS (4)
  - Urine odour abnormal [Unknown]
  - Skin odour abnormal [Unknown]
  - Abnormal faeces [Unknown]
  - Product odour abnormal [None]
